FAERS Safety Report 9369935 (Version 4)
Quarter: 2014Q2

REPORT INFORMATION
  Report Type: Report from Study
  Country: GB (occurrence: GB)
  Receive Date: 20130626
  Receipt Date: 20140530
  Transmission Date: 20141212
  Serious: Yes (Hospitalization, Other)
  Sender: FDA-Public Use
  Company Number: GB-ROCHE-1241715

PATIENT
  Age: 87 Year
  Sex: Male

DRUGS (9)
  1. RANIBIZUMAB [Suspect]
     Indication: PRODUCT USED FOR UNKNOWN INDICATION
     Route: 050
     Dates: start: 20101118
  2. RANIBIZUMAB [Suspect]
     Route: 050
     Dates: start: 20130207
  3. RANIBIZUMAB [Suspect]
     Route: 050
     Dates: start: 20130321
  4. ISOSORBIDE MONONITRATE [Concomitant]
  5. ASPIRIN [Concomitant]
  6. SIMVASTATIN [Concomitant]
  7. AMITRIPTYLINE [Concomitant]
  8. ATENOLOL [Concomitant]
     Route: 065
     Dates: start: 20130224
  9. BISOPROLOL [Concomitant]
     Route: 065
     Dates: start: 20130224

REACTIONS (9)
  - Sciatica [Recovered/Resolved]
  - Dementia Alzheimer^s type [Not Recovered/Not Resolved]
  - Incontinence [Unknown]
  - Vitamin B12 deficiency [Unknown]
  - Sinus arrest [Recovered/Resolved]
  - Vomiting [Unknown]
  - Charles Bonnet syndrome [Unknown]
  - Cognitive disorder [Unknown]
  - Syncope [Unknown]
